FAERS Safety Report 8308383-7 (Version None)
Quarter: 2012Q2

REPORT INFORMATION
  Report Type: 
  Country: None (occurrence: None)
  Receive Date: 20120424
  Receipt Date: 20120411
  Transmission Date: 20120825
  Serious: Yes (Death)
  Sender: FDA-Public Use
  Company Number: CA-ROCHE-1059528

PATIENT
  Sex: Female

DRUGS (2)
  1. DORNASE ALFA [Suspect]
     Indication: CYSTIC FIBROSIS
     Dates: start: 20100101
  2. SOMATROPIN [Suspect]
     Indication: GROWTH HORMONE DEFICIENCY
     Dates: start: 20120101

REACTIONS (1)
  - DEATH [None]
